FAERS Safety Report 24819501 (Version 1)
Quarter: 2025Q1

REPORT INFORMATION
  Report Type: Spontaneous
  Country: FR (occurrence: FR)
  Receive Date: 20250108
  Receipt Date: 20250108
  Transmission Date: 20250408
  Serious: No
  Sender: TOLMAR
  Company Number: FR-RECORDATI-2024009645

PATIENT
  Age: 75 Year
  Sex: Male

DRUGS (1)
  1. ELIGARD [Suspect]
     Active Substance: LEUPROLIDE ACETATE
     Indication: Prostate cancer
     Dates: start: 20241204

REACTIONS (5)
  - Intercepted product preparation error [Unknown]
  - Syringe issue [Unknown]
  - Device occlusion [Unknown]
  - Product temperature excursion issue [Unknown]
  - Product storage error [Unknown]

NARRATIVE: CASE EVENT DATE: 20241204
